FAERS Safety Report 5076354-2 (Version None)
Quarter: 2006Q3

REPORT INFORMATION
  Report Type: 
  Country: None (occurrence: None)
  Receive Date: 20060807
  Receipt Date: 20060727
  Transmission Date: 20061208
  Serious: Yes (Hospitalization)
  Sender: FDA-Public Use
  Company Number: 6020723

PATIENT
  Age: 58 Year
  Sex: Female

DRUGS (11)
  1. BISOPROLOL FUMARATE [Suspect]
     Indication: DRUG USE FOR UNKNOWN INDICATION
     Dosage: 1.25 MG (1,25 MG)
     Route: 048
     Dates: start: 20060121, end: 20060123
  2. PERINDOPRIL ERBUMINE [Suspect]
     Indication: DRUG USE FOR UNKNOWN INDICATION
     Route: 048
     Dates: end: 20060123
  3. DIGOXIN [Suspect]
     Indication: ATRIAL FIBRILLATION
     Dosage: 0,5 DOSAGE FORMS (0,5 DOSAGE FORMS)
     Route: 048
     Dates: start: 20060112, end: 20060123
  4. DIGOXIN [Suspect]
     Indication: ATRIAL FLUTTER
     Dosage: 0,5 DOSAGE FORMS (0,5 DOSAGE FORMS)
     Route: 048
     Dates: start: 20060112, end: 20060123
  5. CORDARONE [Suspect]
     Indication: ATRIAL FIBRILLATION
     Dosage: 200 MG (200 MG, 1 IN 1 D)
     Route: 048
  6. CORDARONE [Suspect]
     Indication: ATRIAL FLUTTER
     Dosage: 200 MG (200 MG, 1 IN 1 D)
     Route: 048
  7. SURBRONC     (AMBROXOL HYDROCHLORIDE) [Concomitant]
  8. MOVICOL               ( SODIUM BICARBONATE, POTASSIUM CHLORIDE, MACROG [Concomitant]
  9. IMOVANE              (ZOPICLONE) [Concomitant]
  10. WARFARIN SODIUM [Suspect]
     Indication: DRUG USE FOR UNKNOWN INDICATION
     Route: 048
     Dates: end: 20060123
  11. WARFARIN SODIUM [Suspect]
     Indication: DRUG USE FOR UNKNOWN INDICATION
     Route: 048
     Dates: start: 20060101

REACTIONS (6)
  - BRADYCARDIA [None]
  - DRUG INTERACTION [None]
  - HYPOTENSION [None]
  - NAUSEA [None]
  - OVERDOSE [None]
  - SYNCOPE [None]
